FAERS Safety Report 17926036 (Version 1)
Quarter: 2020Q2

REPORT INFORMATION
  Report Type: Spontaneous
  Country: US (occurrence: US)
  Receive Date: 20200622
  Receipt Date: 20200622
  Transmission Date: 20200714
  Serious: No
  Sender: FDA-Public Use
  Company Number: US-TEVA-2020-US-1788074

PATIENT
  Age: 47 Year
  Sex: Male

DRUGS (1)
  1. TRAZODONE HCL TEVA [Suspect]
     Active Substance: TRAZODONE HYDROCHLORIDE
     Indication: SLEEP DISORDER
     Dosage: 100 MG
     Route: 065
     Dates: start: 2000

REACTIONS (3)
  - Product size issue [Unknown]
  - Drug ineffective [Unknown]
  - Hypersomnia [Unknown]
